FAERS Safety Report 10044769 (Version 12)
Quarter: 2019Q1

REPORT INFORMATION
  Report Type: Report from Study
  Country: DE (occurrence: DE)
  Receive Date: 20140328
  Receipt Date: 20190213
  Transmission Date: 20190417
  Serious: Yes (Life-Threatening, Hospitalization, Other)
  Sender: FDA-Public Use
  Company Number: DE-INCYTE CORPORATION-2014IN000706

PATIENT

DRUGS (23)
  1. LISINOPRIL. [Concomitant]
     Active Substance: LISINOPRIL
     Indication: HYPERTENSION
     Dosage: 20 MG
     Route: 065
     Dates: start: 20080110, end: 20140320
  2. TORASEMIDE [Concomitant]
     Active Substance: TORSEMIDE
     Dosage: 15 MG (1-0.5 -0)
     Route: 065
     Dates: start: 20140515
  3. TAMSULOSINE [Concomitant]
     Active Substance: TAMSULOSIN HYDROCHLORIDE
     Indication: BENIGN PROSTATIC HYPERPLASIA
     Dosage: 0.4 MG
     Route: 065
     Dates: start: 201012
  4. NOVALGIN                           /00169801/ [Concomitant]
     Active Substance: ACETAMINOPHEN\CAFFEINE\PROPYPHENAZONE
     Indication: PRODUCT USED FOR UNKNOWN INDICATION
     Dosage: 30 GTT, QID (1-1-1-1)
     Route: 065
  5. INCB018424 [Suspect]
     Active Substance: RUXOLITINIB
     Indication: PRIMARY MYELOFIBROSIS
     Dosage: 40 MG/DAY/TWICE
     Route: 048
     Dates: start: 20130404, end: 20131204
  6. INCB018424 [Suspect]
     Active Substance: RUXOLITINIB
     Dosage: 10 MG/DAY/TWICE
     Route: 048
     Dates: start: 20140724
  7. INCB018424 [Suspect]
     Active Substance: RUXOLITINIB
     Dosage: 10 MG/DAY/TWICE
     Route: 048
     Dates: start: 20141125, end: 20150106
  8. DURAGESIC [Concomitant]
     Active Substance: FENTANYL
     Indication: PAIN
     Dosage: 50 MG, EVERY 3 DAYS
     Route: 065
     Dates: end: 20160425
  9. INCB018424 [Suspect]
     Active Substance: RUXOLITINIB
     Dosage: 10 MG/DAY/TWICE
     Route: 048
     Dates: start: 20150420
  10. TILIDINE [Concomitant]
     Active Substance: TILIDINE
     Indication: PAIN
     Route: 065
     Dates: start: 20120703, end: 20140320
  11. PANTOPRAZOLE [Concomitant]
     Active Substance: PANTOPRAZOLE
     Indication: PRODUCT USED FOR UNKNOWN INDICATION
     Dosage: 40 MG
     Route: 065
     Dates: start: 20140320
  12. ALLOPURINOL. [Concomitant]
     Active Substance: ALLOPURINOL
     Indication: BLOOD URIC ACID INCREASED
     Dosage: 600 MG
     Route: 065
     Dates: start: 20140320
  13. ALLOPURINOL. [Concomitant]
     Active Substance: ALLOPURINOL
     Dosage: 300 MG, QD (1-0-0)
     Route: 065
  14. INCB018424 [Suspect]
     Active Substance: RUXOLITINIB
     Dosage: 15 MG/DAY/TWICE
     Route: 048
     Dates: start: 20150106
  15. NOVALGIN (METAMIZOLE SODIUM) [Concomitant]
     Active Substance: METAMIZOLE SODIUM
     Indication: PAIN
     Dosage: 120 GTT
     Route: 065
     Dates: start: 20080110, end: 20130418
  16. ATMADISC [Concomitant]
     Active Substance: FLUTICASONE PROPIONATE\SALMETEROL XINAFOATE
     Indication: ASTHMA
     Dosage: 1 DF(0-0-1), (50/250 UG)
  17. TORASEMIDE [Concomitant]
     Active Substance: TORSEMIDE
     Indication: HYPERTENSION
     Dosage: 30 MG
     Route: 065
     Dates: start: 20140320, end: 20140515
  18. PANTOZOL [Concomitant]
     Active Substance: PANTOPRAZOLE SODIUM
     Indication: PRODUCT USED FOR UNKNOWN INDICATION
     Dosage: 1 DF, QD (1-0-0)
     Route: 065
  19. INCB018424 [Suspect]
     Active Substance: RUXOLITINIB
     Dosage: 30 MG/DAY/TWICE
     Route: 048
     Dates: start: 20131205
  20. INCB018424 [Suspect]
     Active Substance: RUXOLITINIB
     Dosage: 20 MG/DAY/TWICE20 MG, QD
     Route: 048
     Dates: start: 20141016
  21. AMLODIPINE [Concomitant]
     Active Substance: AMLODIPINE BESYLATE
     Indication: HYPERTENSION
     Dosage: 10 MG
     Route: 065
     Dates: start: 20080110
  22. RAMIPRIL. [Concomitant]
     Active Substance: RAMIPRIL
     Indication: HYPERTENSION
     Dosage: 5 MG (1-0-1) (10 MG )
     Route: 065
     Dates: start: 20140320
  23. DOXAZOSIN [Concomitant]
     Active Substance: DOXAZOSIN\DOXAZOSIN MESYLATE
     Indication: HYPERTENSION
     Dosage: 4 MG
     Route: 065
     Dates: start: 20080110, end: 20140320

REACTIONS (17)
  - White blood cell count increased [Unknown]
  - Fall [Recovered/Resolved]
  - General physical condition abnormal [Unknown]
  - Hemiparesis [Unknown]
  - Blood alkaline phosphatase increased [Unknown]
  - Subdural haematoma [Recovered/Resolved]
  - Inflammation [Recovering/Resolving]
  - Platelet count decreased [Unknown]
  - Blood creatinine increased [Unknown]
  - Haemoglobin decreased [Unknown]
  - Blood potassium increased [Unknown]
  - Aspartate aminotransferase increased [Unknown]
  - Blood glucose decreased [Unknown]
  - Blood lactate dehydrogenase increased [Unknown]
  - Glomerular filtration rate increased [Unknown]
  - Gamma-glutamyltransferase increased [Unknown]
  - Blood urea increased [Unknown]

NARRATIVE: CASE EVENT DATE: 20140124
